FAERS Safety Report 8439663-2 (Version None)
Quarter: 2012Q2

REPORT INFORMATION
  Report Type: 
  Country: None (occurrence: None)
  Receive Date: 20120605
  Receipt Date: 20120528
  Transmission Date: 20120825
  Serious: Yes (Hospitalization)
  Sender: FDA-Public Use
  Company Number: 2012SP024641

PATIENT
  Age: 65 Year
  Sex: Male
  Weight: 65 kg

DRUGS (11)
  1. MUCOSTA [Concomitant]
  2. PEG-INTRON [Suspect]
     Indication: HEPATITIS C
     Dosage: 1.5 MCG, KG, QW, SC
     Route: 058
     Dates: start: 20120313, end: 20120404
  3. TELAVIC (ANTIVIRAL NOS) [Suspect]
     Indication: HEPATITIS C
     Dosage: 750 MG, TID, PO
     Route: 048
     Dates: start: 20120313, end: 20120404
  4. RIBAVIRIN [Concomitant]
  5. ALDACTONE [Concomitant]
  6. CELESTAMINE TAB [Concomitant]
  7. INTERFERON [Concomitant]
  8. OMEPRAZOLE [Concomitant]
  9. SUCRALFATE [Concomitant]
  10. REBETOL [Suspect]
     Indication: HEPATITIS C
     Dosage: 400 MG, BID, PO
     Route: 048
     Dates: start: 20120313, end: 20120404
  11. LASIX [Concomitant]

REACTIONS (7)
  - DYSPNOEA EXERTIONAL [None]
  - INTERSTITIAL LUNG DISEASE [None]
  - OEDEMA [None]
  - DECREASED APPETITE [None]
  - PLATELET COUNT DECREASED [None]
  - BLOOD CREATININE INCREASED [None]
  - BLOOD URIC ACID INCREASED [None]
